FAERS Safety Report 11571890 (Version 2)
Quarter: 2016Q4

REPORT INFORMATION
  Report Type: Spontaneous
  Country: US (occurrence: US)
  Receive Date: 20150929
  Receipt Date: 20161007
  Transmission Date: 20170206
  Serious: No
  Sender: FDA-Public Use
  Company Number: US-SA-2015SA125074

PATIENT
  Age: 53 Year
  Sex: Female

DRUGS (3)
  1. TYLENOL [Concomitant]
     Active Substance: ACETAMINOPHEN
  2. AUBAGIO [Suspect]
     Active Substance: TERIFLUNOMIDE
     Indication: MULTIPLE SCLEROSIS
     Route: 048
  3. NUVIGIL [Concomitant]
     Active Substance: ARMODAFINIL

REACTIONS (7)
  - Contusion [Unknown]
  - Visual impairment [Unknown]
  - Weight increased [Unknown]
  - Blood pressure systolic increased [Unknown]
  - Irritability [Not Recovered/Not Resolved]
  - Fall [Unknown]
  - Mass [Recovered/Resolved]

NARRATIVE: CASE EVENT DATE: 2014
